FAERS Safety Report 6359096-2 (Version None)
Quarter: 2009Q3

REPORT INFORMATION
  Report Type: 
  Country: None (occurrence: None)
  Receive Date: 20090917
  Receipt Date: 20070706
  Transmission Date: 20100115
  Serious: Yes (Other)
  Sender: FDA-Public Use
  Company Number: US-ASTRAZENECA-2007UW09658

PATIENT
  Age: 24113 Day
  Sex: Male
  Weight: 113.9 kg

DRUGS (15)
  1. SEROQUEL [Suspect]
     Indication: SCHIZOPHRENIA
     Dosage: 300 MG AM/600 MG, 900 MG
     Route: 048
     Dates: start: 19991001, end: 20060101
  2. SEROQUEL [Suspect]
     Dosage: 25 MG - 400 MG
     Route: 048
     Dates: start: 20010228
  3. RISPERDAL [Suspect]
     Route: 048
     Dates: start: 19990101, end: 20040101
  4. RISPERDAL [Suspect]
     Dosage: 0.25 MG- 0.5 MG
     Dates: start: 20010730
  5. ZOCOR [Concomitant]
     Route: 048
     Dates: start: 20001103
  6. AVANDIA [Concomitant]
     Route: 048
     Dates: start: 20001103
  7. GLUCOPHAGE [Concomitant]
     Dates: start: 20001103
  8. DEPAKOTE [Concomitant]
     Dates: start: 20001103
  9. CELEBREX [Concomitant]
     Dosage: 100 MG - 200 MG
     Dates: start: 20001103
  10. ABILIFY [Concomitant]
     Dosage: 15 MG - 20 MG
     Dates: start: 20041201
  11. FUROSEMIDE [Concomitant]
     Dates: start: 20041201
  12. TEMAZEPAM [Concomitant]
     Dates: start: 20041201
  13. BENZTROPINE MESYLATE [Concomitant]
     Dosage: 0.5 MG-2 MG
     Dates: start: 20011016
  14. LORAZEPAM [Concomitant]
     Dates: start: 20010821
  15. PRINIVIL [Concomitant]
     Route: 048
     Dates: start: 20001103

REACTIONS (4)
  - DIABETES MELLITUS [None]
  - HYPERGLYCAEMIA [None]
  - NEUROPATHY PERIPHERAL [None]
  - TYPE 2 DIABETES MELLITUS [None]
